FAERS Safety Report 9512223 (Version 1)
Quarter: 2013Q3

REPORT INFORMATION
  Report Type: Report from Study
  Country: MX (occurrence: MX)
  Receive Date: 20130910
  Receipt Date: 20130910
  Transmission Date: 20140515
  Serious: Yes (Other)
  Sender: FDA-Public Use
  Company Number: PHHY2013MX099364

PATIENT
  Age: 70 Year
  Sex: Female

DRUGS (1)
  1. EXFORGE [Suspect]
     Indication: HYPERTENSION
     Dosage: 1 DF, (160/5 MG) DAILY
     Route: 048
     Dates: start: 201306

REACTIONS (3)
  - Macular scar [Unknown]
  - Visual field defect [Unknown]
  - Visual impairment [Not Recovered/Not Resolved]
